FAERS Safety Report 9205049 (Version 2)
Quarter: 2013Q2

REPORT INFORMATION
  Report Type: Spontaneous
  Country: IT (occurrence: IT)
  Receive Date: 20130402
  Receipt Date: 20130430
  Transmission Date: 20140414
  Serious: Yes (Hospitalization)
  Sender: FDA-Public Use
  Company Number: IT-BAYER-2013-038157

PATIENT
  Age: 61 Year
  Sex: Female

DRUGS (5)
  1. CARDIOASPIRIN [Suspect]
     Indication: INTENTIONAL SELF-INJURY
     Dosage: 1000 MG, ONCE
     Route: 048
     Dates: start: 20130220, end: 20130220
  2. TROSPIUM [Suspect]
     Indication: INTENTIONAL SELF-INJURY
     Dosage: 900 MG, ONCE
     Route: 048
     Dates: start: 20130220, end: 20130220
  3. ABILIFY [Concomitant]
  4. SEACOR [Concomitant]
  5. SINVACOR [Concomitant]

REACTIONS (5)
  - Mydriasis [Recovering/Resolving]
  - Dry mouth [Recovering/Resolving]
  - Agitation [Recovering/Resolving]
  - Respiratory alkalosis [Recovering/Resolving]
  - Drug abuse [Recovering/Resolving]
